FAERS Safety Report 16129783 (Version 1)
Quarter: 2019Q1

REPORT INFORMATION
  Report Type: Spontaneous
  Country: US (occurrence: US)
  Receive Date: 20190328
  Receipt Date: 20190328
  Transmission Date: 20190418
  Serious: Yes (Other)
  Sender: FDA-Public Use
  Company Number: US-ASTRAZENECA-2019SE44988

PATIENT
  Age: 20770 Day
  Sex: Female
  Weight: 111.1 kg

DRUGS (23)
  1. AMITRIPTYLINE [Concomitant]
     Active Substance: AMITRIPTYLINE
  2. GLIMEPIRIDE. [Concomitant]
     Active Substance: GLIMEPIRIDE
  3. ATENOLOL. [Concomitant]
     Active Substance: ATENOLOL
  4. CLOPIDOGREL [Concomitant]
     Active Substance: CLOPIDOGREL BISULFATE
  5. CETIRIZINE [Concomitant]
     Active Substance: CETIRIZINE HYDROCHLORIDE
  6. RANEXA [Concomitant]
     Active Substance: RANOLAZINE
  7. NITROSTAT [Concomitant]
     Active Substance: NITROGLYCERIN
  8. METFORMIN [Concomitant]
     Active Substance: METFORMIN HYDROCHLORIDE
  9. ONGLYZA [Suspect]
     Active Substance: SAXAGLIPTIN HYDROCHLORIDE
     Indication: DIABETES MELLITUS
     Route: 048
     Dates: start: 20130722, end: 20151107
  10. NASONEX [Concomitant]
     Active Substance: MOMETASONE FUROATE
  11. HYDROCODONE [Concomitant]
     Active Substance: HYDROCODONE
  12. ATORVASTATIN [Concomitant]
     Active Substance: ATORVASTATIN
  13. VALSARTAN. [Concomitant]
     Active Substance: VALSARTAN
  14. CLONIDINE. [Concomitant]
     Active Substance: CLONIDINE
  15. ESCITALOPRAM [Concomitant]
     Active Substance: ESCITALOPRAM OXALATE
  16. ZETIA [Concomitant]
     Active Substance: EZETIMIBE
  17. LEVOFLOXACIN. [Concomitant]
     Active Substance: LEVOFLOXACIN
  18. TEMAZEPAM. [Concomitant]
     Active Substance: TEMAZEPAM
  19. LIPITOR [Concomitant]
     Active Substance: ATORVASTATIN CALCIUM
  20. KOMBIGLYZE XR [Suspect]
     Active Substance: METFORMIN HYDROCHLORIDE\SAXAGLIPTIN HYDROCHLORIDE
     Indication: DIABETES MELLITUS
     Dosage: 2.5 TO 1000 MG
     Route: 048
     Dates: start: 20160203, end: 20160425
  21. NIFEDIPINE. [Concomitant]
     Active Substance: NIFEDIPINE
  22. ACETAMINOPHEN. [Concomitant]
     Active Substance: ACETAMINOPHEN
  23. CELEBREX [Concomitant]
     Active Substance: CELECOXIB

REACTIONS (1)
  - Cardiac failure congestive [Unknown]

NARRATIVE: CASE EVENT DATE: 20141111
